FAERS Safety Report 7807626-3 (Version None)
Quarter: 2011Q4

REPORT INFORMATION
  Report Type: 
  Country: None (occurrence: None)
  Receive Date: 20111011
  Receipt Date: 20111006
  Transmission Date: 20120403
  Serious: Yes (Hospitalization)
  Sender: FDA-Public Use
  Company Number: TR-ABBOTT-11P-161-0861401-00

PATIENT
  Age: 8 Year
  Sex: Female

DRUGS (1)
  1. LUCRIN DEPOT-PED [Suspect]
     Indication: PRECOCIOUS PUBERTY
     Dates: start: 20100101, end: 20111001

REACTIONS (1)
  - RENAL FAILURE ACUTE [None]
